FAERS Safety Report 20541391 (Version 1)
Quarter: 2022Q1

REPORT INFORMATION
  Report Type: Spontaneous
  Country: DE (occurrence: DE)
  Receive Date: 20220302
  Receipt Date: 20220302
  Transmission Date: 20220424
  Serious: Yes (Death, Hospitalization)
  Sender: FDA-Public Use
  Company Number: DE-BAYER-2021A231706

PATIENT
  Age: 82 Year
  Sex: Female
  Weight: 69 kg

DRUGS (1)
  1. XARELTO [Suspect]
     Active Substance: RIVAROXABAN
     Indication: Atrial fibrillation
     Dosage: 20 MG, OM
     Route: 048
     Dates: start: 201507

REACTIONS (6)
  - Haemorrhage intracranial [Fatal]
  - Headache [Fatal]
  - Eye pain [Fatal]
  - Nausea [Fatal]
  - Vomiting [Fatal]
  - Coma [Fatal]

NARRATIVE: CASE EVENT DATE: 20210913
